FAERS Safety Report 8214668-5 (Version None)
Quarter: 2012Q1

REPORT INFORMATION
  Report Type: 
  Country: None (occurrence: None)
  Receive Date: 20120229
  Receipt Date: 20110714
  Transmission Date: 20120608
  Serious: Yes (Other)
  Sender: FDA-Public Use
  Company Number: US-JNJFOC-20110703823

PATIENT
  Age: 55 Year
  Sex: Male
  Weight: 86.1 kg

DRUGS (7)
  1. AMBIEN [Concomitant]
  2. WELLBUTRIN (BUPROPION) TABLET [Concomitant]
  3. MORPHINE (MORPHINE) TABLET [Concomitant]
  4. OXYCODONE (OXYCODONE) TABLET [Concomitant]
  5. CLONAZEPAM [Concomitant]
  6. SOMA [Concomitant]
  7. IBUPROFEN TABLETS [Suspect]
     Indication: PAIN
     Dosage: 200 MG, ORAL
     Route: 048
     Dates: start: 20090101

REACTIONS (2)
  - GASTRIC HAEMORRHAGE [None]
  - GASTRIC DISORDER [None]
